FAERS Safety Report 6060090-X (Version None)
Quarter: 2009Q1

REPORT INFORMATION
  Report Type: 
  Country: None (occurrence: None)
  Receive Date: 20090127
  Receipt Date: 20090116
  Transmission Date: 20090719
  Serious: Yes (Death, Hospitalization)
  Sender: FDA-Public Use
  Company Number: 004646

PATIENT
  Age: 75 Year
  Sex: Male
  Weight: 48.1 kg

DRUGS (13)
  1. PLETAL [Suspect]
     Indication: CEREBRAL INFARCTION
     Dates: start: 20050806, end: 20080929
  2. PROCATEROL HCL [Suspect]
     Dosage: PRN RESPIRATORY
     Route: 055
     Dates: start: 20080930
  3. CANDESARTAN CILEXETIL [Suspect]
     Indication: HYPERTENSION
     Dosage: 8 MG, DAILY DOSE, ORAL
     Route: 048
     Dates: start: 20050708
  4. GLUCOSE (GLUCOSE) INJECTION, 5% [Suspect]
     Dosage: 400 ML, 200 ML, DAILY DOSE, IV DRIP
     Route: 041
     Dates: start: 20080930
  5. GLUCOSE (GLUCOSE) INJECTION, 5% [Suspect]
     Dosage: 400 ML, 200 ML, DAILY DOSE, IV DRIP
     Route: 041
     Dates: start: 20081028
  6. BROMHEXINE HYDROCHLORIDE (BROMHEXINE HYDROCHLORIDE) INHALANT [Suspect]
     Dosage: PRN; RESPIRATORY
     Route: 055
     Dates: start: 20080930
  7. ISOTONIC SOLUTION CHLORIDE SOLUTION (ISOTONIC SODIUM CHLORIDE SOLUTION [Suspect]
     Indication: MEDICATION DILUTION
     Dosage: PRN
     Dates: start: 20080930
  8. SOLITAX-H (MAINTENANCE MEDIUM (WITH GLUCOSE)) INJECTION [Suspect]
     Indication: FLUID REPLACEMENT
     Dosage: 500 ML, DAILY DOSE; IV DRIP ; 500 ML, DAILY DOSE, IV DRIP
     Route: 041
     Dates: start: 20081003, end: 20081008
  9. SOLITAX-H (MAINTENANCE MEDIUM (WITH GLUCOSE)) INJECTION [Suspect]
     Indication: FLUID REPLACEMENT
     Dosage: 500 ML, DAILY DOSE; IV DRIP ; 500 ML, DAILY DOSE, IV DRIP
     Route: 041
     Dates: start: 20081027, end: 20081107
  10. BFLUID (MIXED AMINO ACID CARBOHYDRATE ELECTROLYTE VITAMIN COMBINE) INJ [Suspect]
     Indication: FLUID REPLACEMENT
     Dosage: 1000 ML, DAILY DOSE; IV DRIP
     Route: 041
     Dates: start: 20081027, end: 20081107
  11. NEOLAMIN 3B INJ. (HYDROXOCOBALAMIN ACETATE, PYRIDOXAL PHOSPHATE, THIAM [Suspect]
     Indication: VITAMIN SUPPLEMENTATION
     Dosage: 10 ML, DAILY DOSE; IV DRIP
     Route: 041
     Dates: start: 20081027, end: 20081107
  12. FIRSTCIN (CEFOZOPRAN HYDROCHLORIDE) INJECTION [Suspect]
     Indication: PNEUMONIA
     Dosage: 2 G, DAILY DOSE; IV DRIP
     Route: 041
     Dates: start: 20081028, end: 20081104
  13. DILTIAZEM HYDROCHLORIDE [Concomitant]

REACTIONS (12)
  - ALANINE AMINOTRANSFERASE INCREASED [None]
  - ANAEMIA [None]
  - ANOREXIA [None]
  - ASPARTATE AMINOTRANSFERASE INCREASED [None]
  - BLOOD POTASSIUM DECREASED [None]
  - DEHYDRATION [None]
  - INFECTION [None]
  - LABORATORY TEST ABNORMAL [None]
  - PLEURAL EFFUSION [None]
  - PNEUMONIA KLEBSIELLA [None]
  - REFUSAL OF TREATMENT BY PATIENT [None]
  - RENAL FAILURE ACUTE [None]
